FAERS Safety Report 15838756 (Version 4)
Quarter: 2019Q1

REPORT INFORMATION
  Report Type: Report from Study
  Country: GB (occurrence: GB)
  Receive Date: 20190117
  Receipt Date: 20190222
  Transmission Date: 20190417
  Serious: Yes (Other)
  Sender: FDA-Public Use
  Company Number: GB-JNJFOC-20190118113

PATIENT
  Age: 39 Year
  Sex: Female

DRUGS (1)
  1. STELARA [Suspect]
     Active Substance: USTEKINUMAB
     Indication: CROHN^S DISEASE
     Route: 058
     Dates: start: 20180718

REACTIONS (9)
  - Paraesthesia [Unknown]
  - Nasopharyngitis [Unknown]
  - Fall [Unknown]
  - Dizziness [Unknown]
  - Lower respiratory tract infection [Unknown]
  - Psoriasis [Unknown]
  - Palpitations [Unknown]
  - Inappropriate schedule of product administration [Unknown]
  - Ear infection [Unknown]

NARRATIVE: CASE EVENT DATE: 201902
